FAERS Safety Report 8609169-6 (Version None)
Quarter: 2012Q3

REPORT INFORMATION
  Report Type: 
  Country: None (occurrence: None)
  Receive Date: 20120821
  Receipt Date: 20120815
  Transmission Date: 20120928
  Serious: No
  Sender: FDA-Public Use
  Company Number: US-B.I. PHARMACEUTICALS,INC./RIDGEFIELD-2012-BP-19943BP

PATIENT
  Age: 50 Year
  Sex: Male

DRUGS (8)
  1. SPIRIVA [Suspect]
     Indication: CHRONIC OBSTRUCTIVE PULMONARY DISEASE
     Dosage: 18 MCG
     Route: 055
     Dates: start: 20060101
  2. MICARDIS [Suspect]
     Indication: HYPERTENSION
     Dosage: 80 MG
     Route: 048
     Dates: start: 20060101
  3. GABAPENTIN [Concomitant]
     Indication: NEUROPATHY PERIPHERAL
     Dosage: 3600 MG
     Route: 048
  4. NEXIUM [Concomitant]
     Indication: GASTROOESOPHAGEAL REFLUX DISEASE
     Route: 048
  5. PROVENTIL-HFA [Concomitant]
     Indication: ASTHMA
     Route: 055
  6. BUSPAR [Concomitant]
     Indication: ANXIETY
     Dosage: 10 MG
     Route: 048
  7. CYMBALTA [Concomitant]
     Indication: DEPRESSION
     Dosage: 120 MG
     Route: 048
  8. LUNESTA [Concomitant]
     Indication: SLEEP DISORDER
     Dosage: 3 MG
     Route: 048

REACTIONS (1)
  - TOOTH FRACTURE [None]
